FAERS Safety Report 23271475 (Version 1)
Quarter: 2023Q4

REPORT INFORMATION
  Report Type: Report from Study
  Country: US (occurrence: US)
  Receive Date: 20231207
  Receipt Date: 20231207
  Transmission Date: 20240109
  Serious: Yes (Hospitalization)
  Sender: FDA-Public Use
  Company Number: US-IGSA-BIG0026711

PATIENT
  Sex: Female

DRUGS (1)
  1. XEMBIFY [Suspect]
     Active Substance: HUMAN IMMUNOGLOBULIN G
     Indication: Immunodeficiency common variable
     Dosage: 20 GRAM, Q.2WK.
     Route: 058
     Dates: start: 202305

REACTIONS (9)
  - Illness [Unknown]
  - Infection [Unknown]
  - Infusion site erythema [Unknown]
  - Infusion site pruritus [Unknown]
  - Acute kidney injury [Unknown]
  - Renal disorder [Unknown]
  - Dehydration [Unknown]
  - Pain [Unknown]
  - Inflammation [Unknown]
